FAERS Safety Report 19191279 (Version 8)
Quarter: 2023Q2

REPORT INFORMATION
  Report Type: Report from Study
  Country: CO (occurrence: CO)
  Receive Date: 20210428
  Receipt Date: 20230502
  Transmission Date: 20230722
  Serious: Yes (Life-Threatening, Other)
  Sender: FDA-Public Use
  Company Number: CO-002147023-NVSC2021CO085671

PATIENT

DRUGS (23)
  1. RUXOLITINIB [Suspect]
     Active Substance: RUXOLITINIB
     Indication: Myelofibrosis
     Dosage: 20 MG, QD
     Route: 065
  2. RUXOLITINIB [Suspect]
     Active Substance: RUXOLITINIB
     Dosage: 20 MG, Q24H
     Route: 048
     Dates: start: 20210324, end: 20210329
  3. RUXOLITINIB [Suspect]
     Active Substance: RUXOLITINIB
     Dosage: 40 MG, QD
     Route: 048
     Dates: end: 20210330
  4. RUXOLITINIB [Suspect]
     Active Substance: RUXOLITINIB
     Dosage: 10 MG, Q12H
     Route: 048
     Dates: start: 20210330, end: 20210428
  5. RUXOLITINIB [Suspect]
     Active Substance: RUXOLITINIB
     Dosage: UNK, Q12H (1 OF 10 MG)
     Route: 048
  6. RUXOLITINIB [Suspect]
     Active Substance: RUXOLITINIB
     Dosage: 20 MG, Q24H
     Route: 048
     Dates: start: 20210501, end: 20210506
  7. RUXOLITINIB [Suspect]
     Active Substance: RUXOLITINIB
     Dosage: 10 MG, Q12H
     Route: 048
     Dates: start: 20210507
  8. RUXOLITINIB [Suspect]
     Active Substance: RUXOLITINIB
     Dosage: 10 MG, Q12H
     Route: 048
  9. RUXOLITINIB [Suspect]
     Active Substance: RUXOLITINIB
     Dosage: 5 MG, Q12H
     Route: 048
  10. RUXOLITINIB [Suspect]
     Active Substance: RUXOLITINIB
     Dosage: UNK (2 TABLETS OF 5 MG IN THE MORNING AND 1 TABLET OF 5 MG AT NIGHT)
     Route: 048
  11. RUXOLITINIB [Suspect]
     Active Substance: RUXOLITINIB
     Dosage: UNK (2 TABLETS IN THE MORNING AND 1 TABLET AT NIGHT)
     Route: 048
  12. RUXOLITINIB [Suspect]
     Active Substance: RUXOLITINIB
     Dosage: 15 MG, QD (10 MG IN THE MORNING AND 5 MG IN THE AFTERNOON)
     Route: 065
     Dates: start: 20220414
  13. RUXOLITINIB [Suspect]
     Active Substance: RUXOLITINIB
     Dosage: 15 MG, QD
     Route: 048
  14. RUXOLITINIB [Suspect]
     Active Substance: RUXOLITINIB
     Dosage: 15 MG, QD (1 TABLET OF 10 MG IN THE MORNING AND THE OTHER 5 MG AT 10 AT NIGHT)
     Route: 048
  15. RUXOLITINIB [Suspect]
     Active Substance: RUXOLITINIB
     Dosage: 15 MG, QD
     Route: 048
  16. RUXOLITINIB [Suspect]
     Active Substance: RUXOLITINIB
     Dosage: 20 (UNITS NOT PROVIDED)
     Route: 048
  17. RUXOLITINIB [Suspect]
     Active Substance: RUXOLITINIB
     Dosage: 10 (UNITS NOT PROVIDED)
     Route: 048
  18. RUXOLITINIB [Suspect]
     Active Substance: RUXOLITINIB
     Dosage: UNK (STOP DATE- 27 FEB)
     Route: 048
  19. RUXOLITINIB [Suspect]
     Active Substance: RUXOLITINIB
     Dosage: ONE OF 5 (UNITS NOT PROVIDED), BID (IN THE MORNING AND AT NIGHT) (START DATE-27 FEB)
     Route: 048
  20. RUXOLITINIB [Suspect]
     Active Substance: RUXOLITINIB
     Dosage: 20 MG (ONE OF 20  MG)
     Route: 048
  21. RUXOLITINIB [Suspect]
     Active Substance: RUXOLITINIB
     Dosage: 5 MG, BID (5 MG IN THE MORNING AND 5 MG AT NIGH)
     Route: 048
  22. LOSARTAN [Suspect]
     Active Substance: LOSARTAN
     Indication: Hypertension
     Dosage: 50 MG, Q24H (1 YEAR AND A HALF AGO APPROXIMATELY)
     Route: 048
  23. LEVOTHYROXINE [Concomitant]
     Active Substance: LEVOTHYROXINE
     Indication: Hyperthyroidism
     Dosage: 50 MG, QD (ONE HOUR BEFORE BREAKFAST), (8 YEARS AGO APPROXIMATELY)
     Route: 048

REACTIONS (20)
  - Hypersensitivity [Unknown]
  - Inappropriate schedule of product administration [Unknown]
  - Influenza [Unknown]
  - Product supply issue [Unknown]
  - Haematocrit decreased [Recovered/Resolved]
  - Haematocrit increased [Recovered/Resolved]
  - Haemoglobin decreased [Unknown]
  - Haemoglobin abnormal [Recovered/Resolved]
  - Full blood count decreased [Recovered/Resolved]
  - Pruritus [Unknown]
  - White blood cell count decreased [Unknown]
  - Contusion [Unknown]
  - Migraine [Unknown]
  - Ear pain [Recovered/Resolved]
  - Platelet count increased [Unknown]
  - Platelet count decreased [Unknown]
  - Haemorrhage [Unknown]
  - Headache [Unknown]
  - Blood viscosity abnormal [Unknown]
  - Viral infection [Unknown]
